FAERS Safety Report 9704272 (Version 1)
Quarter: 2013Q4

REPORT INFORMATION
  Report Type: Spontaneous
  Country: US (occurrence: None)
  Receive Date: 20131121
  Receipt Date: 20131121
  Transmission Date: 20140711
  Serious: Yes (Hospitalization)
  Sender: FDA-Public Use
  Company Number: None

PATIENT
  Age: 59 Year
  Sex: Male
  Weight: 80 kg

DRUGS (13)
  1. CHLORPHENIRAMINE [Suspect]
     Indication: PRURITUS
     Route: 048
     Dates: start: 20110929, end: 20110929
  2. BEXAROTENE [Concomitant]
  3. CLOBETASOL OINTMENT [Concomitant]
  4. DOXEPIN [Concomitant]
  5. FENOFIBRATE [Concomitant]
  6. INTERFERON GAMMA-1 B [Concomitant]
  7. MIRTAZIPINE [Concomitant]
  8. METHOXSALEN [Concomitant]
  9. ROSUVASTATIN [Concomitant]
  10. LEVOTHYROXINE [Concomitant]
  11. MUPIROCIN [Concomitant]
  12. HELOBETASOL OINTMENT [Concomitant]
  13. DESOXIMETASONE OINTMENT [Concomitant]

REACTIONS (1)
  - Atrial fibrillation [None]
